FAERS Safety Report 24631200 (Version 1)
Quarter: 2024Q4

REPORT INFORMATION
  Report Type: Spontaneous
  Country: US (occurrence: None)
  Receive Date: 20241117
  Receipt Date: 20241117
  Transmission Date: 20250114
  Serious: Yes (Disabling)
  Sender: Public
  Company Number: None

PATIENT
  Age: 58 Year
  Sex: Male
  Weight: 103 kg

DRUGS (1)
  1. TENECTEPLASE [Suspect]
     Active Substance: TENECTEPLASE
     Indication: Ischaemic stroke
     Dosage: OTHER FREQUENCY : ONCE;?
     Route: 042
     Dates: start: 20240622, end: 20240622

REACTIONS (7)
  - Respiratory failure [None]
  - Malignant middle cerebral artery syndrome [None]
  - Vasogenic cerebral oedema [None]
  - Cerebral mass effect [None]
  - Brain herniation [None]
  - Thalamic microhaemorrhage [None]
  - Therapy interrupted [None]

NARRATIVE: CASE EVENT DATE: 20240625
